FAERS Safety Report 15682794 (Version 1)
Quarter: 2018Q4

REPORT INFORMATION
  Report Type: Report from Study
  Country: ID (occurrence: ID)
  Receive Date: 20181203
  Receipt Date: 20181203
  Transmission Date: 20190205
  Serious: Yes (Death, Hospitalization)
  Sender: FDA-Public Use
  Company Number: ID-BAYER-2018-159878

PATIENT
  Age: 73 Year
  Sex: Male

DRUGS (1)
  1. NEXAVAR [Suspect]
     Active Substance: SORAFENIB
     Indication: HEPATOCELLULAR CARCINOMA
     Dosage: 200 MG, BID
     Route: 048
     Dates: start: 20180529

REACTIONS (11)
  - Feeling hot [Recovered/Resolved]
  - Weight decreased [Not Recovered/Not Resolved]
  - Abdominal distension [None]
  - Abdominal distension [Not Recovered/Not Resolved]
  - Insomnia [None]
  - Abdominal pain [None]
  - Death [Fatal]
  - Decreased appetite [Not Recovered/Not Resolved]
  - Palmar-plantar erythrodysaesthesia syndrome [Recovering/Resolving]
  - Food refusal [None]
  - Fluid intake reduced [None]

NARRATIVE: CASE EVENT DATE: 2018
